FAERS Safety Report 16155832 (Version 1)
Quarter: 2019Q2

REPORT INFORMATION
  Report Type: Spontaneous
  Country: JP (occurrence: JP)
  Receive Date: 20190404
  Receipt Date: 20190404
  Transmission Date: 20190711
  Serious: Yes (Life-Threatening, Other)
  Sender: FDA-Public Use
  Company Number: JP-SA-2019SA053419

PATIENT
  Age: 82 Year
  Sex: Female

DRUGS (9)
  1. RAMUCIRUMAB [Suspect]
     Active Substance: RAMUCIRUMAB
     Indication: GASTRIC CANCER STAGE IV
     Dosage: 8 MG/KG ON DAY 1 AND DAY 15 Q4WKS
  2. GIMERACIL;OTERACIL;TEGAFUR [Suspect]
     Active Substance: GIMERACIL\OTERACIL\TEGAFUR
     Indication: GASTRIC CANCER STAGE IV
  3. OXALIPLATIN. [Suspect]
     Active Substance: OXALIPLATIN
     Indication: GASTRIC CANCER STAGE IV
     Dosage: 130 MG/M2 , ON DAY 1?14, Q3WKS
     Route: 065
     Dates: start: 201601
  4. RAMUCIRUMAB [Suspect]
     Active Substance: RAMUCIRUMAB
     Indication: METASTASES TO LYMPH NODES
  5. GIMERACIL;OTERACIL;TEGAFUR [Suspect]
     Active Substance: GIMERACIL\OTERACIL\TEGAFUR
     Indication: METASTASES TO LYMPH NODES
     Dosage: 80 MG/M2 , ON DAY 1?14Q3WKS
     Dates: start: 201601
  6. CAPECITABINE. [Concomitant]
     Active Substance: CAPECITABINE
     Indication: GASTRIC CANCER STAGE IV
     Dosage: 2000 MG/M2 ON DAY 1?14, Q3WKS
     Dates: start: 201701
  7. PACLITAXEL. [Suspect]
     Active Substance: PACLITAXEL
     Indication: GASTRIC CANCER STAGE IV
     Dosage: 80 MG/M2 DAY 1, DAY 8, AND DAY 15 Q4WKS
  8. PACLITAXEL. [Suspect]
     Active Substance: PACLITAXEL
     Indication: METASTASES TO LYMPH NODES
  9. OXALIPLATIN. [Suspect]
     Active Substance: OXALIPLATIN
     Indication: METASTASES TO LYMPH NODES

REACTIONS (3)
  - Disease progression [Not Recovered/Not Resolved]
  - Neutropenia [Unknown]
  - Carcinoembryonic antigen increased [Not Recovered/Not Resolved]
